FAERS Safety Report 20608043 (Version 2)
Quarter: 2022Q1

REPORT INFORMATION
  Report Type: Spontaneous
  Country: JP (occurrence: JP)
  Receive Date: 20220317
  Receipt Date: 20220325
  Transmission Date: 20220423
  Serious: Yes (Other)
  Sender: FDA-Public Use
  Company Number: JP-ONO-2022JP006448

PATIENT

DRUGS (1)
  1. ONGENTYS [Suspect]
     Active Substance: OPICAPONE
     Indication: Parkinson^s disease
     Dosage: UNK, UNKNOWN
     Route: 048
     Dates: start: 20211014

REACTIONS (7)
  - General symptom [Unknown]
  - Oral mucosa erosion [Unknown]
  - Mouth haemorrhage [Unknown]
  - Malaise [Unknown]
  - Flushing [Unknown]
  - Lip swelling [Unknown]
  - Swelling face [Unknown]
